FAERS Safety Report 6670770-0 (Version None)
Quarter: 2010Q2

REPORT INFORMATION
  Report Type: 
  Country: None (occurrence: None)
  Receive Date: 20100407
  Receipt Date: 20100401
  Transmission Date: 20101027
  Serious: Yes (Other)
  Sender: FDA-Public Use
  Company Number: PHEH2010US03281

PATIENT
  Sex: Female

DRUGS (9)
  1. EXELON [Suspect]
     Indication: DEMENTIA ALZHEIMER'S TYPE
     Dosage: 4.6 MG, QD
     Dates: start: 20090901
  2. EXELON [Suspect]
     Dosage: 9.5 MG DAILY
     Route: 062
     Dates: start: 20100309, end: 20100315
  3. EXELON [Suspect]
     Dosage: 4.6 MG, QD
     Dates: start: 20100301
  4. TRAMADOL [Concomitant]
     Dosage: 50 MG
     Route: 048
  5. LIPITOR [Concomitant]
     Dosage: 20 MG
     Route: 048
  6. ATENOLOL [Concomitant]
     Dosage: 50 MG
     Route: 048
  7. MELOXICAM [Concomitant]
     Dosage: 15 MG
     Route: 048
  8. FLUOXETINE [Concomitant]
     Dosage: 20 MG
     Route: 048
  9. ARICEPT [Suspect]
     Dosage: 10 MG
     Route: 048

REACTIONS (6)
  - DELUSION [None]
  - DISORIENTATION [None]
  - GENERAL PHYSICAL HEALTH DETERIORATION [None]
  - HALLUCINATION [None]
  - NAUSEA [None]
  - SOCIAL AVOIDANT BEHAVIOUR [None]
